FAERS Safety Report 6401262-1 (Version None)
Quarter: 2009Q4

REPORT INFORMATION
  Report Type: 
  Country: None (occurrence: None)
  Receive Date: 20091015
  Receipt Date: 20091007
  Transmission Date: 20100525
  Serious: Yes (Hospitalization, Other)
  Sender: FDA-Public Use
  Company Number: DE-JNJFOC-20090905156

PATIENT
  Age: 30 Year
  Sex: Male

DRUGS (5)
  1. TOPAMAX [Suspect]
     Indication: MYOCLONIC EPILEPSY
     Dates: start: 20090815
  2. PHENOBARBITAL [Concomitant]
     Indication: MYOCLONIC EPILEPSY
  3. RIVOTRIL [Concomitant]
     Indication: MYOCLONIC EPILEPSY
  4. KEPRA [Concomitant]
     Indication: MYOCLONIC EPILEPSY
  5. VENLAFAXINE HCL [Concomitant]

REACTIONS (2)
  - LEUKOPENIA [None]
  - NEUTROPENIA [None]
